FAERS Safety Report 10210926 (Version 1)
Quarter: 2014Q2

REPORT INFORMATION
  Report Type: Spontaneous
  Country: US (occurrence: None)
  Receive Date: 20140528
  Receipt Date: 20140528
  Transmission Date: 20141212
  Serious: Yes (Death, Hospitalization)
  Sender: FDA-Public Use
  Company Number: 2014HINLIT0444

PATIENT
  Age: 15 Year
  Sex: Female

DRUGS (3)
  1. EMTRICITABINE + TENOFOVIR [Suspect]
     Indication: HIV INFECTION
     Dosage: UNK, UNKNOWN
  2. NEVIRAPINE (NEVIRAPINE) [Suspect]
     Indication: HIV INFECTION
     Dosage: UNK, UNKNOWN
  3. RELTEGRAVIR [Suspect]
     Indication: HIV INFECTION
     Dosage: UNK UNKNOWN

REACTIONS (10)
  - Immune reconstitution inflammatory syndrome [None]
  - Dysarthria [None]
  - Dysphagia [None]
  - Aspiration [None]
  - Urinary incontinence [None]
  - Hemiplegia [None]
  - Abasia [None]
  - Asthenia [None]
  - Generalised tonic-clonic seizure [None]
  - Depressed level of consciousness [None]
